FAERS Safety Report 15399276 (Version 1)
Quarter: 2018Q3

REPORT INFORMATION
  Report Type: Report from Study
  Country: US (occurrence: US)
  Receive Date: 20180918
  Receipt Date: 20180918
  Transmission Date: 20181010
  Serious: No
  Sender: FDA-Public Use
  Company Number: PHEH2018US037606

PATIENT
  Sex: Female

DRUGS (2)
  1. ENTRESTO [Suspect]
     Active Substance: SACUBITRIL\VALSARTAN
     Indication: EJECTION FRACTION DECREASED
     Dosage: 1 DF(MG 24 SACUBITRIL, MG 26 VALSARTAN), UNK
     Route: 065
  2. ENTRESTO [Suspect]
     Active Substance: SACUBITRIL\VALSARTAN
     Dosage: 1 DF(MG 49 SACUBITRIL, MG 51 VALSARTAN), UNK
     Route: 065

REACTIONS (5)
  - Skin discolouration [Unknown]
  - Pruritus [Recovered/Resolved]
  - Abdominal pain upper [Unknown]
  - Abdominal discomfort [Unknown]
  - Rash [Not Recovered/Not Resolved]
